FAERS Safety Report 6966145-7 (Version None)
Quarter: 2010Q3

REPORT INFORMATION
  Report Type: 
  Country: None (occurrence: None)
  Receive Date: 20100903
  Receipt Date: 20100830
  Transmission Date: 20110219
  Serious: Yes (Hospitalization)
  Sender: FDA-Public Use
  Company Number: PHHO2010FR11477

PATIENT
  Sex: Female
  Weight: 61 kg

DRUGS (3)
  1. CGS 20267 T30748+TAB [Suspect]
     Indication: BREAST CANCER
     Dosage: 2.5 MG
     Route: 048
     Dates: start: 20080623
  2. LEUPROLIDE ACETATE [Concomitant]
  3. IRRADIATION [Concomitant]

REACTIONS (4)
  - FALL [None]
  - LOWER LIMB FRACTURE [None]
  - OSTEOSYNTHESIS [None]
  - PAIN [None]
